FAERS Safety Report 9706869 (Version 7)
Quarter: 2018Q4

REPORT INFORMATION
  Report Type: Report from Study
  Country: DE (occurrence: DE)
  Receive Date: 20131125
  Receipt Date: 20181001
  Transmission Date: 20190205
  Serious: Yes (Death)
  Sender: FDA-Public Use
  Company Number: DE-ROCHE-1304415

PATIENT
  Age: 73 Year
  Sex: Male
  Weight: 62 kg

DRUGS (13)
  1. RANITIDIN [Concomitant]
     Active Substance: RANITIDINE HYDROCHLORIDE
     Indication: PROPHYLAXIS
     Route: 048
     Dates: start: 20130603, end: 20130930
  2. BEVACIZUMAB. [Suspect]
     Active Substance: BEVACIZUMAB
     Indication: COLORECTAL CANCER METASTATIC
     Dosage: LAST DOSE OF BEVACIZUMAB ADMINISTERED PRIOR TO THE DEATH WAS ON 30/SEP/2018
     Route: 042
     Dates: start: 20130930, end: 20130930
  3. ONCOFOLIC [Concomitant]
     Active Substance: FOLATE SODIUM
     Route: 042
     Dates: start: 20130916, end: 20130930
  4. OXALIPLATIN. [Concomitant]
     Active Substance: OXALIPLATIN
     Route: 042
     Dates: start: 20130715, end: 20130909
  5. OXALIPLATIN. [Concomitant]
     Active Substance: OXALIPLATIN
     Route: 042
     Dates: start: 20130916, end: 20130930
  6. 5-FLUOROURACIL [Concomitant]
     Active Substance: FLUOROURACIL
     Indication: RECTAL CANCER
     Route: 042
     Dates: start: 20130603, end: 20130708
  7. ONCOFOLIC [Concomitant]
     Active Substance: FOLATE SODIUM
     Indication: RECTAL CANCER
     Route: 042
     Dates: start: 20130603, end: 20130708
  8. MCP [Concomitant]
     Active Substance: METOCLOPRAMIDE HYDROCHLORIDE
     Indication: PROPHYLAXIS
     Route: 048
     Dates: start: 20130603, end: 20130930
  9. BEVACIZUMAB. [Suspect]
     Active Substance: BEVACIZUMAB
     Indication: RECTAL CANCER
     Route: 042
     Dates: start: 20130610, end: 20130610
  10. 5-FLUOROURACIL [Concomitant]
     Active Substance: FLUOROURACIL
     Route: 042
     Dates: start: 20130715, end: 20130909
  11. 5-FLUOROURACIL [Concomitant]
     Active Substance: FLUOROURACIL
     Route: 042
     Dates: start: 20130916, end: 20130930
  12. ONCOFOLIC [Concomitant]
     Active Substance: FOLATE SODIUM
     Route: 042
     Dates: start: 20130715, end: 20130909
  13. OXALIPLATIN. [Concomitant]
     Active Substance: OXALIPLATIN
     Indication: RECTAL CANCER
     Route: 042
     Dates: start: 20130603, end: 20130708

REACTIONS (6)
  - Death [Fatal]
  - General physical health deterioration [Not Recovered/Not Resolved]
  - Dizziness [Not Recovered/Not Resolved]
  - Listless [Not Recovered/Not Resolved]
  - Cardiovascular disorder [Not Recovered/Not Resolved]
  - Fatigue [Not Recovered/Not Resolved]

NARRATIVE: CASE EVENT DATE: 20131007
